FAERS Safety Report 21660794 (Version 1)
Quarter: 2022Q4

REPORT INFORMATION
  Report Type: Spontaneous
  Country: US (occurrence: US)
  Receive Date: 20221130
  Receipt Date: 20221130
  Transmission Date: 20230112
  Serious: Yes (Death, Hospitalization, Other)
  Sender: FDA-Public Use
  Company Number: US-AMGEN-USASP2022202746

PATIENT

DRUGS (17)
  1. FILGRASTIM [Suspect]
     Active Substance: FILGRASTIM
     Indication: Prophylaxis
     Dosage: 5 MICROGRAM/KILOGRAM, QD
     Route: 065
  2. FILGRASTIM [Suspect]
     Active Substance: FILGRASTIM
     Indication: Haematopoietic stem cell mobilisation
  3. PEGFILGRASTIM [Suspect]
     Active Substance: PEGFILGRASTIM
     Indication: Prophylaxis
     Dosage: UNK
     Route: 065
  4. BRENTUXIMAB VEDOTIN [Concomitant]
     Active Substance: BRENTUXIMAB VEDOTIN
  5. CYCLOPHOSPHAMIDE [Concomitant]
     Active Substance: CYCLOPHOSPHAMIDE
     Dosage: UNK, EVERY 21 DAYS
  6. DOXORUBICIN [Concomitant]
     Active Substance: DOXORUBICIN
     Dosage: UNK, EVERY 21 DAYS
  7. VINCRISTINE [Concomitant]
     Active Substance: VINCRISTINE
     Dosage: UNK, EVERY 21 DAYS
  8. ETOPOSIDE [Concomitant]
     Active Substance: ETOPOSIDE
     Dosage: 100 MILLIGRAM/SQ. METER, EVERY 21 DAYS
     Route: 040
  9. ETOPOSIDE [Concomitant]
     Active Substance: ETOPOSIDE
     Dosage: 200 MILLIGRAM/SQ. METER, EVERY 21 DAYS
     Route: 048
  10. PREDNISONE [Concomitant]
     Active Substance: PREDNISONE
     Dosage: UNK, EVERY 21 DAYS
  11. GEMCITABINE [Concomitant]
     Active Substance: GEMCITABINE
     Dosage: 2700 MILLIGRAM/SQ. METER
  12. BUSULFAN [Concomitant]
     Active Substance: BUSULFAN
     Dosage: 105 MILLIGRAM/SQ. METER, QD
     Route: 040
  13. MELPHALAN [Concomitant]
     Active Substance: MELPHALAN
     Dosage: 60 MILLIGRAM/SQ. METER, QD
  14. LEVETIRACETAM [Concomitant]
     Active Substance: LEVETIRACETAM
  15. URSODIOL [Concomitant]
     Active Substance: URSODIOL
  16. PALIFERMIN [Concomitant]
     Active Substance: PALIFERMIN
  17. CALCIUM CHLORIDE\SODIUM CHLORIDE\SODIUM PHOSPHATE, DIBASIC, ANHYDROUS\ [Concomitant]
     Active Substance: CALCIUM CHLORIDE\SODIUM CHLORIDE\SODIUM PHOSPHATE, DIBASIC, ANHYDROUS\SODIUM PHOSPHATE, MONOBASIC, A

REACTIONS (10)
  - Neutropenia [Unknown]
  - Febrile neutropenia [Unknown]
  - Pancytopenia [Unknown]
  - Enterococcal bacteraemia [Unknown]
  - Colitis [Unknown]
  - Appendicitis [Unknown]
  - Mucosal inflammation [Unknown]
  - Thrombocytopenia [Unknown]
  - Angioimmunoblastic T-cell lymphoma [Fatal]
  - Peripheral T-cell lymphoma unspecified recurrent [Fatal]
